FAERS Safety Report 4865767-7 (Version None)
Quarter: 2005Q4

REPORT INFORMATION
  Report Type: 
  Country: None (occurrence: None)
  Receive Date: 20051223
  Receipt Date: 20051212
  Transmission Date: 20060501
  Serious: Yes (Other)
  Sender: FDA-Public Use
  Company Number: PHHO2005IT19431

PATIENT
  Age: 78 Year
  Sex: Female

DRUGS (3)
  1. ZOLEDRONATE VS PLACEBO [Suspect]
     Indication: OSTEOPOROSIS POSTMENOPAUSAL
     Dosage: DOUBLE-BLIND
     Route: 042
     Dates: start: 20030509
  2. VITAMIN D [Concomitant]
     Indication: OSTEOPOROSIS POSTMENOPAUSAL
  3. CALCIUM GLUCONATE [Concomitant]
     Indication: OSTEOPOROSIS POSTMENOPAUSAL

REACTIONS (2)
  - ARTHRALGIA [None]
  - OSTEONECROSIS [None]
